FAERS Safety Report 11556146 (Version 2)
Quarter: 2015Q3

REPORT INFORMATION
  Report Type: Spontaneous
  Country: US (occurrence: US)
  Receive Date: 20150916
  Receipt Date: 20150916
  Transmission Date: 20151125
  Serious: No
  Sender: FDA-Public Use
  Company Number: US-ELI_LILLY_AND_COMPANY-US200712005209

PATIENT
  Age: 91 Year
  Sex: Female

DRUGS (2)
  1. FORTEO [Suspect]
     Active Substance: TERIPARATIDE
     Dates: start: 20080812
  2. FORTEO [Suspect]
     Active Substance: TERIPARATIDE
     Indication: SPINAL COLUMN INJURY
     Dosage: UNK, UNKNOWN
     Route: 058
     Dates: start: 20071204, end: 20080326

REACTIONS (4)
  - Nail growth abnormal [Not Recovered/Not Resolved]
  - Discomfort [Not Recovered/Not Resolved]
  - Hair growth abnormal [Not Recovered/Not Resolved]
  - Pain in jaw [Not Recovered/Not Resolved]

NARRATIVE: CASE EVENT DATE: 200712
